FAERS Safety Report 5070018-7 (Version None)
Quarter: 2006Q3

REPORT INFORMATION
  Report Type: 
  Country: None (occurrence: None)
  Receive Date: 20060731
  Receipt Date: 20060718
  Transmission Date: 20061208
  Serious: Yes (Other)
  Sender: FDA-Public Use
  Company Number: 14446

PATIENT
  Age: 25 Year
  Sex: Male
  Weight: 92.6 kg

DRUGS (5)
  1. METHOTREXATE [Suspect]
     Indication: CROHN'S DISEASE
     Dosage: 17.5 MG FREQ IM
     Route: 030
     Dates: start: 20050118, end: 20060425
  2. ASACOL [Concomitant]
  3. FOLIC ACID [Concomitant]
  4. LANSOPROAZOLE [Concomitant]
  5. PREDNISOLONE [Concomitant]

REACTIONS (2)
  - BREAST MASS [None]
  - GYNAECOMASTIA [None]
